FAERS Safety Report 25532036 (Version 1)
Quarter: 2025Q3

REPORT INFORMATION
  Report Type: Spontaneous
  Country: CN (occurrence: CN)
  Receive Date: 20250709
  Receipt Date: 20250709
  Transmission Date: 20251021
  Serious: Yes (Hospitalization)
  Sender: ROCHE
  Company Number: CN-ROCHE-10000331731

PATIENT
  Age: 16 Year
  Sex: Female

DRUGS (4)
  1. AVASTIN [Suspect]
     Active Substance: BEVACIZUMAB
     Indication: Bone sarcoma
     Route: 042
     Dates: start: 20250610, end: 20250610
  2. SINTILIMAB [Suspect]
     Active Substance: SINTILIMAB
     Indication: Bone sarcoma
     Route: 042
     Dates: start: 20250609, end: 20250609
  3. CYCLOPHOSPHAMIDE [Suspect]
     Active Substance: CYCLOPHOSPHAMIDE
     Indication: Bone sarcoma
     Route: 042
     Dates: start: 20250611, end: 20250615
  4. TOPOTECAN HYDROCHLORIDE [Suspect]
     Active Substance: TOPOTECAN HYDROCHLORIDE
     Indication: Bone sarcoma
     Route: 042
     Dates: start: 20250611, end: 20250615

REACTIONS (2)
  - Myelosuppression [Recovering/Resolving]
  - Off label use [Unknown]

NARRATIVE: CASE EVENT DATE: 20250621
